FAERS Safety Report 4744641-0 (Version None)
Quarter: 2005Q3

REPORT INFORMATION
  Report Type: 
  Country: None (occurrence: None)
  Receive Date: 20050812
  Receipt Date: 20050812
  Transmission Date: 20060218
  Serious: No
  Sender: FDA-Public Use
  Company Number: None

PATIENT
  Age: 41 Year
  Sex: Female

DRUGS (2)
  1. FERRLECIT [Suspect]
     Indication: IRON DEFICIENCY ANAEMIA
     Dosage: 250MG  OVER 2 HOURS  INTRAVENOU
     Route: 042
     Dates: start: 20050629, end: 20050629
  2. FERRLECIT [Suspect]
     Indication: RENAL FAILURE CHRONIC
     Dosage: 250MG  OVER 2 HOURS  INTRAVENOU
     Route: 042
     Dates: start: 20050629, end: 20050629

REACTIONS (7)
  - ARTHRALGIA [None]
  - CHEST DISCOMFORT [None]
  - FEELING HOT [None]
  - HEADACHE [None]
  - INFUSION RELATED REACTION [None]
  - MUSCLE SPASMS [None]
  - RASH [None]
